FAERS Safety Report 18123654 (Version 1)
Quarter: 2020Q3

REPORT INFORMATION
  Report Type: Report from Study
  Country: US (occurrence: US)
  Receive Date: 20200807
  Receipt Date: 20200807
  Transmission Date: 20201103
  Serious: No
  Sender: FDA-Public Use
  Company Number: US-AEGERION PHARMACEUTICAL, INC-AEGR004802

PATIENT
  Age: 20 Year
  Sex: Female
  Weight: 41.1 kg

DRUGS (74)
  1. ACETAMINOPHEN. [Concomitant]
     Active Substance: ACETAMINOPHEN
     Dosage: 650 MG, SINGLE
     Route: 048
     Dates: start: 20151025, end: 20151025
  2. FENOFIBRATE. [Concomitant]
     Active Substance: FENOFIBRATE
     Indication: HYPERTRIGLYCERIDAEMIA
     Dosage: 145 MG, QD
     Route: 048
  3. RANITIDINE. [Concomitant]
     Active Substance: RANITIDINE
     Indication: GASTROOESOPHAGEAL REFLUX DISEASE
     Dosage: 75 MG, QD
     Route: 048
  4. METHOTREXATE SODIUM. [Concomitant]
     Active Substance: METHOTREXATE SODIUM
     Indication: DERMATOMYOSITIS
     Dosage: 1.2 ML, WEEKLY
     Route: 058
  5. AMITRIPTYLINE [Concomitant]
     Active Substance: AMITRIPTYLINE
     Indication: DEPRESSION
     Dosage: 10 MG, QD
     Route: 048
  6. MORPHINE [Concomitant]
     Active Substance: MORPHINE
     Indication: ABDOMINAL PAIN
     Dosage: 2 MG, ONCE
     Route: 042
     Dates: start: 20150527, end: 20150527
  7. DIPHENHYDRAMINE HCL [Concomitant]
     Active Substance: DIPHENHYDRAMINE HYDROCHLORIDE
     Indication: SINUSITIS
     Dosage: 1 DF, PRN
     Route: 048
  8. FLUOCINOLONE [Concomitant]
     Active Substance: FLUOCINOLONE
     Indication: DRY SKIN
     Dosage: UNK, QD
     Route: 061
  9. ROBAXIN [Concomitant]
     Active Substance: METHOCARBAMOL
     Indication: PAIN
     Dosage: 500 MG, TID
     Route: 048
     Dates: end: 20190717
  10. FENOFIBRATE. [Concomitant]
     Active Substance: FENOFIBRATE
     Dosage: 134 MG, QD
     Route: 048
     Dates: start: 20200318
  11. MAGNESIUM OXIDE. [Concomitant]
     Active Substance: MAGNESIUM OXIDE
     Indication: SUPPLEMENTATION THERAPY
     Dosage: 200 MG, BID
     Route: 048
  12. LOVAZA [Concomitant]
     Active Substance: OMEGA-3-ACID ETHYL ESTERS
     Indication: HYPERTRIGLYCERIDAEMIA
     Dosage: 2 G, BID
     Route: 048
  13. INSULIN [Concomitant]
     Active Substance: INSULIN NOS
     Dosage: 0.1 IU/KG/HR, CONTINUNOUS
     Route: 042
     Dates: start: 20151027, end: 20151029
  14. INSULIN [Concomitant]
     Active Substance: INSULIN NOS
     Dosage: UNK
  15. HUMULIN R [Concomitant]
     Active Substance: INSULIN HUMAN
     Indication: DIABETES MELLITUS
     Dosage: 20 IU, QID
     Route: 058
     Dates: start: 20150326, end: 20200318
  16. NIZORAL [Concomitant]
     Active Substance: KETOCONAZOLE
     Indication: DERMATITIS
  17. PRILOSEC [Concomitant]
     Active Substance: OMEPRAZOLE MAGNESIUM
     Indication: OESOPHAGEAL DISORDER
  18. OXYCODONE [Concomitant]
     Active Substance: OXYCODONE
     Indication: SURGERY
     Dosage: 5 MG, Q4HR PRN
     Route: 048
     Dates: start: 20191219, end: 20200110
  19. ACETAMINOPHEN. [Concomitant]
     Active Substance: ACETAMINOPHEN
     Dosage: 500 MG, PRN
     Route: 048
     Dates: start: 20150807, end: 20150807
  20. FLUTICASONE. [Concomitant]
     Active Substance: FLUTICASONE
     Indication: HYPERSENSITIVITY
     Dosage: 50 UG, BID
     Route: 045
  21. INSULIN REGULAR                    /01223201/ [Concomitant]
     Active Substance: INSULIN BEEF
     Indication: DIABETES MELLITUS
     Dosage: 0.3 ML, TID
     Route: 058
  22. GABAPENTIN. [Concomitant]
     Active Substance: GABAPENTIN
     Dosage: 1200 MG, QD
     Route: 048
     Dates: start: 20191127
  23. TORADOL [Concomitant]
     Active Substance: KETOROLAC TROMETHAMINE
     Indication: PAIN
     Dosage: 15 MG, SINGLE
     Dates: start: 20150824, end: 20150824
  24. AMMONIUM LACTATE. [Concomitant]
     Active Substance: AMMONIUM LACTATE
     Indication: DRY SKIN
     Dosage: UNK, PRN
     Route: 061
  25. ROBAXIN [Concomitant]
     Active Substance: METHOCARBAMOL
     Dosage: 500 MG, QID
     Route: 048
     Dates: start: 20190718
  26. SILVER SULFADIAZINE. [Concomitant]
     Active Substance: SILVER SULFADIAZINE
     Indication: DERMATITIS
     Dosage: UNK, BID
     Route: 061
  27. KENALOG [Concomitant]
     Active Substance: TRIAMCINOLONE ACETONIDE
     Indication: DERMATITIS
     Dosage: BID 2/WK ON,2W/K OFF
     Route: 061
  28. ACARBOSE. [Concomitant]
     Active Substance: ACARBOSE
     Indication: DIABETES MELLITUS
     Dosage: 100 MG, TID
     Route: 048
  29. FERROUS SULFATE. [Concomitant]
     Active Substance: FERROUS SULFATE
     Indication: ANAEMIA
     Dosage: 324 MG, QD
     Route: 048
  30. MAGNESIUM OXIDE. [Concomitant]
     Active Substance: MAGNESIUM OXIDE
     Dosage: 400 MG, BID
     Route: 048
     Dates: start: 20151028
  31. MELOXICAM. [Concomitant]
     Active Substance: MELOXICAM
     Indication: DERMATOMYOSITIS
     Dosage: 7.5 MG, QD
     Route: 048
  32. OMEGA?3 FATTY ACIDS [Concomitant]
     Active Substance: OMEGA-3 FATTY ACIDS
     Indication: HYPERTRIGLYCERIDAEMIA
     Dosage: 1 G, QD
     Route: 048
  33. DOCUSATE SODIUM. [Concomitant]
     Active Substance: DOCUSATE SODIUM
     Indication: CONSTIPATION
     Dosage: 100 MG, BID
     Route: 048
  34. TYLENOL [Concomitant]
     Active Substance: ACETAMINOPHEN
     Indication: ABDOMINAL PAIN
     Dosage: 663 MG, QID
     Dates: start: 20150527, end: 20150531
  35. AMOXICILLIN. [Concomitant]
     Active Substance: AMOXICILLIN
     Indication: PANCREATITIS ACUTE
     Dosage: 500 MG, QID
     Route: 048
  36. PERIDEX                            /00016001/ [Concomitant]
     Active Substance: DEXAMETHASONE
     Indication: TOOTH INFECTION
     Dosage: 15 ML, BID
     Route: 048
     Dates: start: 20150827, end: 201509
  37. ACTOS [Concomitant]
     Active Substance: PIOGLITAZONE HYDROCHLORIDE
     Indication: DIABETES MELLITUS
     Dosage: 30 MG, QD
     Route: 048
     Dates: end: 20200318
  38. METRELEPTIN [Suspect]
     Active Substance: METRELEPTIN
     Indication: LIPODYSTROPHY ACQUIRED
     Dosage: 2.5 MG, BID
     Dates: start: 20140909, end: 20190205
  39. METRELEPTIN [Suspect]
     Active Substance: METRELEPTIN
     Dosage: 3.0 MG, BID
     Dates: start: 20190206, end: 20190912
  40. FOLIC ACID. [Concomitant]
     Active Substance: FOLIC ACID
     Indication: ANAEMIA
     Dosage: 1 MG, QD
     Route: 048
  41. INSULIN [Concomitant]
     Active Substance: INSULIN NOS
     Indication: HYPERTRIGLYCERIDAEMIA
     Dosage: 0.1 IU/KG/HR, CONTINOUS
     Route: 042
  42. INSULIN [Concomitant]
     Active Substance: INSULIN NOS
     Dosage: 0.02 IU/KG/HR, CONTINOUS
     Route: 042
     Dates: start: 20151022, end: 20151024
  43. GABAPENTIN. [Concomitant]
     Active Substance: GABAPENTIN
     Indication: PAIN
     Dosage: 100 MG, QD
     Route: 048
     Dates: start: 20150603, end: 20160908
  44. MAGNESIUM SULFATE. [Concomitant]
     Active Substance: MAGNESIUM SULFATE
     Indication: BLOOD MAGNESIUM DECREASED
     Dosage: 1100 MG, SINGLE
     Dates: start: 20151026, end: 20151027
  45. PRILOSEC [Concomitant]
     Active Substance: OMEPRAZOLE MAGNESIUM
     Indication: GASTROOESOPHAGEAL REFLUX DISEASE
     Dosage: 20 MG, QD
     Route: 048
  46. METHOTREXATE SODIUM. [Concomitant]
     Active Substance: METHOTREXATE SODIUM
     Indication: DERMATOMYOSITIS
     Dosage: 25 MG, WEEKLY
     Route: 058
     Dates: start: 20190816, end: 20191103
  47. METFORMIN [Concomitant]
     Active Substance: METFORMIN HYDROCHLORIDE
     Indication: DIABETES MELLITUS
     Dosage: 1000 MG, BID
     Route: 048
     Dates: start: 20191125
  48. ATENOLOL. [Concomitant]
     Active Substance: ATENOLOL
     Indication: HYPERTENSION
     Dosage: 25 MG, QD
     Route: 048
     Dates: start: 2009
  49. CHOLECALCIFEROL [Concomitant]
     Active Substance: CHOLECALCIFEROL
     Dosage: 4000 IU, QD
     Route: 048
     Dates: start: 20200318
  50. GLUCOPHAGE [Concomitant]
     Active Substance: METFORMIN HYDROCHLORIDE
     Indication: DIABETES MELLITUS
     Dosage: 500 MG, TID
     Route: 048
  51. MOMETASONE?FORMOTEROL [Concomitant]
     Indication: ASTHMA
     Dosage: 2 PUFF
     Route: 055
  52. RANITIDINE. [Concomitant]
     Active Substance: RANITIDINE
     Dosage: 150 MG, BID
     Route: 048
     Dates: start: 20181029
  53. METHOTREXATE SODIUM. [Concomitant]
     Active Substance: METHOTREXATE SODIUM
     Dosage: UNK
  54. INSULIN [Concomitant]
     Active Substance: INSULIN NOS
     Dosage: 0.1 IU/KG/HR, CONTINOUS
     Route: 042
     Dates: start: 20150527, end: 20150531
  55. INSULIN [Concomitant]
     Active Substance: INSULIN NOS
     Dosage: 0.1 IU/KG/HR, CONTINOUS
     Route: 042
     Dates: start: 20150824, end: 20150826
  56. HYDROCORTISONE. [Concomitant]
     Active Substance: HYDROCORTISONE
     Indication: DERMATITIS
     Dosage: UNK, BID,2WEEKSON/2WOFF
     Route: 061
  57. TRIAMCINOLONE [Concomitant]
     Active Substance: TRIAMCINOLONE
     Indication: DERMATITIS
     Dosage: UNK, PRN
     Route: 061
  58. METRELEPTIN [Suspect]
     Active Substance: METRELEPTIN
     Dosage: 3.75 MG, QD
     Dates: start: 20190913, end: 20200317
  59. METRELEPTIN [Suspect]
     Active Substance: METRELEPTIN
     Dosage: 4.0 MG, QD
     Dates: start: 20200318
  60. CHOLECALCIFEROL [Concomitant]
     Active Substance: CHOLECALCIFEROL
     Indication: VITAMIN D DECREASED
     Dosage: 5000 IU, QD
     Route: 048
  61. DEXTROSE SODIUM CHLORIDE [Concomitant]
     Indication: ABDOMINAL PAIN
     Dosage: 80 ML/HR. CONTINOUS
     Route: 042
     Dates: start: 20150321, end: 20150322
  62. AMOXICILLIN. [Concomitant]
     Active Substance: AMOXICILLIN
     Dosage: 500 MG, QID
     Route: 048
     Dates: start: 20150603, end: 20150607
  63. GABAPENTIN. [Concomitant]
     Active Substance: GABAPENTIN
     Indication: DERMATOMYOSITIS
     Dosage: 800 MG, QD
     Route: 048
     Dates: start: 20160908, end: 20191126
  64. INSULIN LISPRO [Concomitant]
     Active Substance: INSULIN LISPRO
     Dosage: 25 IU, TID
     Route: 058
     Dates: start: 20150827, end: 20160326
  65. AMPICILLIN SULB. TEVA [Concomitant]
     Indication: TOOTH INFECTION
     Dosage: 1500 MG, QID
     Route: 048
     Dates: start: 20150825, end: 20150829
  66. BACITRACIN ZINC. [Concomitant]
     Active Substance: BACITRACIN ZINC
     Indication: SKIN ULCER
     Dosage: UNK, BID
     Route: 061
  67. ACETAMINOPHEN. [Concomitant]
     Active Substance: ACETAMINOPHEN
     Indication: PAIN
     Dosage: 500 MG, PRN
     Route: 048
  68. ACETAMINOPHEN. [Concomitant]
     Active Substance: ACETAMINOPHEN
     Indication: ABDOMINAL PAIN
     Dosage: 500 MG, QD
     Route: 048
     Dates: start: 20150531, end: 20150531
  69. ALBUTEROL                          /00139501/ [Concomitant]
     Active Substance: ALBUTEROL
     Indication: ASTHMA
     Dosage: 90 UG, PRN
     Route: 055
  70. LISINOPRIL. [Concomitant]
     Active Substance: LISINOPRIL
     Indication: RENAL DISORDER PROPHYLAXIS
     Dosage: 5 MG, QD
     Route: 048
  71. INSULIN LISPRO [Concomitant]
     Active Substance: INSULIN LISPRO
     Indication: DIABETES MELLITUS
     Dosage: 25 IU, TID
     Route: 058
  72. DIPHENHYDRAMINE W/ZINC ACETATE [Concomitant]
     Indication: SINUSITIS
     Dosage: UNK, PRN
     Route: 061
  73. NIZORAL [Concomitant]
     Active Substance: KETOCONAZOLE
     Indication: DRY SKIN
     Dosage: ODFORAWEEK,THEN1/WK
     Route: 061
  74. SENOKOT XTRA [Concomitant]
     Indication: CONSTIPATION
     Dosage: 17.2 MG, QPM PRN
     Route: 048
     Dates: start: 20191207

REACTIONS (1)
  - Tooth infection [Recovered/Resolved]

NARRATIVE: CASE EVENT DATE: 202002
